FAERS Safety Report 15042905 (Version 2)
Quarter: 2019Q1

REPORT INFORMATION
  Report Type: Spontaneous
  Country: FR (occurrence: FR)
  Receive Date: 20180621
  Receipt Date: 20190104
  Transmission Date: 20190417
  Serious: Yes (Hospitalization, Other)
  Sender: FDA-Public Use
  Company Number: FR-MYLANLABS-2018M1041073

PATIENT
  Age: 59 Year
  Sex: Female

DRUGS (4)
  1. IMETH                              /00113801/ [Interacting]
     Active Substance: METHOTREXATE
     Indication: PSORIATIC ARTHROPATHY
     Dosage: 10 MG, QW
     Route: 048
     Dates: start: 2004, end: 20180305
  2. INDOCID                            /00003801/ [Interacting]
     Active Substance: INDOMETHACIN
     Indication: INFLAMMATION
     Dosage: 25 MG, QD
     Route: 048
     Dates: start: 2004, end: 20180305
  3. OMEPRAZOLE. [Suspect]
     Active Substance: OMEPRAZOLE
     Indication: GASTROINTESTINAL DISORDER THERAPY
     Dosage: 20 MG, QD
     Route: 048
     Dates: end: 201803
  4. CHRONO-INDOCID [Interacting]
     Active Substance: INDOMETHACIN
     Indication: INFLAMMATION
     Dosage: 150 MG, QD
     Route: 048
     Dates: start: 2004, end: 20180305

REACTIONS (2)
  - Drug interaction [Unknown]
  - Pancytopenia [Recovered/Resolved]

NARRATIVE: CASE EVENT DATE: 20180305
